FAERS Safety Report 17531942 (Version 1)
Quarter: 2020Q1

REPORT INFORMATION
  Report Type: Spontaneous
  Country: US (occurrence: US)
  Receive Date: 20200303
  Receipt Date: 20200303
  Transmission Date: 20200409
  Serious: No
  Sender: FDA-Public Use
  Company Number: None

PATIENT
  Age: 35 Year
  Sex: Female
  Weight: 62.6 kg

DRUGS (5)
  1. REXULTI [Concomitant]
     Active Substance: BREXPIPRAZOLE
  2. B-COMPLEX (WITH VITAMIN C) [Concomitant]
  3. TRINTELLIX [Suspect]
     Active Substance: VORTIOXETINE HYDROBROMIDE
     Indication: DEPRESSION
     Dosage: ?          QUANTITY:30 DF DOSAGE FORM;?
     Route: 048
     Dates: start: 20191006
  4. VITAMIN D3 [Concomitant]
     Active Substance: CHOLECALCIFEROL
  5. AMBIEN [Suspect]
     Active Substance: ZOLPIDEM TARTRATE

REACTIONS (2)
  - Dyskinesia [None]
  - Myalgia [None]

NARRATIVE: CASE EVENT DATE: 20191011
